FAERS Safety Report 5296905-2 (Version None)
Quarter: 2007Q1

REPORT INFORMATION
  Report Type: 
  Country: None (occurrence: None)
  Receive Date: 20070201
  Receipt Date: 20061004
  Transmission Date: 20070707
  Serious: No
  Sender: FDA-Public Use
  Company Number: 2006PV022621

PATIENT
  Age: 38 Year
  Sex: Female
  Weight: 140.6151 kg

DRUGS (4)
  1. BYETTA [Suspect]
     Indication: WEIGHT DECREASED
     Dosage: 5 MCG; QPM;SC
     Route: 058
     Dates: start: 20060915, end: 20060929
  2. BYETTA [Suspect]
     Indication: WEIGHT DECREASED
     Dosage: 5 MCG; QPM;SC
     Route: 058
     Dates: start: 20061003
  3. METFORMIN HCL [Concomitant]
  4. GLUTEN [Concomitant]

REACTIONS (4)
  - ARTHRALGIA [None]
  - DIZZINESS [None]
  - GINGIVAL PAIN [None]
  - NAUSEA [None]
